FAERS Safety Report 10448973 (Version 1)
Quarter: 2014Q3

REPORT INFORMATION
  Report Type: Spontaneous
  Country: IT (occurrence: IT)
  Receive Date: 20140912
  Receipt Date: 20140912
  Transmission Date: 20150326
  Serious: Yes (Hospitalization)
  Sender: FDA-Public Use
  Company Number: IT-BRISTOL-MYERS SQUIBB COMPANY-21362033

PATIENT
  Age: 81 Year
  Sex: Female

DRUGS (7)
  1. COUMADIN [Suspect]
     Active Substance: WARFARIN SODIUM
     Indication: ATRIAL FIBRILLATION
     Dosage: 1DF- 1 UNIT?INTER: 02-APR-2014.
     Route: 048
     Dates: start: 20140101
  2. SERTRALINE [Concomitant]
     Active Substance: SERTRALINE HYDROCHLORIDE
  3. SIVASTIN [Concomitant]
     Active Substance: SIMVASTATIN
  4. DILZENE [Concomitant]
     Active Substance: DILTIAZEM HYDROCHLORIDE
  5. LORTAAN [Concomitant]
     Active Substance: LOSARTAN POTASSIUM
  6. LASIX [Concomitant]
     Active Substance: FUROSEMIDE
  7. LANSOPRAZOLE. [Concomitant]
     Active Substance: LANSOPRAZOLE

REACTIONS (3)
  - Epistaxis [Unknown]
  - Somnolence [Unknown]
  - Renal failure acute [Unknown]

NARRATIVE: CASE EVENT DATE: 20140402
